FAERS Safety Report 8434149-3 (Version None)
Quarter: 2012Q2

REPORT INFORMATION
  Report Type: 
  Country: None (occurrence: None)
  Receive Date: 20120613
  Receipt Date: 20120605
  Transmission Date: 20120825
  Serious: Yes (Other)
  Sender: FDA-Public Use
  Company Number: US-ACTELION-A-NJ2012-65285

PATIENT

DRUGS (3)
  1. TRACLEER [Suspect]
     Indication: PULMONARY ARTERIAL HYPERTENSION
     Dosage: 125 MG, BID
     Route: 048
     Dates: start: 20070401, end: 20120403
  2. TRACLEER [Suspect]
     Dosage: 62.5 MG, BID
     Route: 048
     Dates: start: 20070301, end: 20070401
  3. TRACLEER [Suspect]
     Dosage: UNK
     Route: 048
     Dates: start: 20120417

REACTIONS (6)
  - PYREXIA [None]
  - ASPARTATE AMINOTRANSFERASE INCREASED [None]
  - ALANINE AMINOTRANSFERASE INCREASED [None]
  - CANDIDIASIS [None]
  - LIVER FUNCTION TEST ABNORMAL [None]
  - BLOOD ALKALINE PHOSPHATASE INCREASED [None]
